FAERS Safety Report 19760063 (Version 2)
Quarter: 2021Q3

REPORT INFORMATION
  Report Type: Spontaneous
  Country: FR (occurrence: FR)
  Receive Date: 20210830
  Receipt Date: 20210902
  Transmission Date: 20211014
  Serious: Yes (Death, Other)
  Sender: FDA-Public Use
  Company Number: FR-BRISTOL-MYERS SQUIBB COMPANY-BMS-2021-085565

PATIENT
  Age: 87 Year
  Sex: Male
  Weight: 69 kg

DRUGS (2)
  1. NIVOLUMAB [Suspect]
     Active Substance: NIVOLUMAB
     Indication: PLEURAL MESOTHELIOMA MALIGNANT
     Dosage: 360 MILLIGRAM, Q3WK
     Route: 042
     Dates: start: 20210721, end: 20210721
  2. IPILIMUMAB [Suspect]
     Active Substance: IPILIMUMAB
     Indication: PLEURAL MESOTHELIOMA MALIGNANT
     Dosage: 69 MILLIGRAM, Q6WK (1 MILLIGRAM/KILOGRAM, Q6WK)
     Route: 042
     Dates: start: 20210721, end: 20210721

REACTIONS (3)
  - Arrhythmia [Fatal]
  - Atrioventricular block [Fatal]
  - Rhabdomyolysis [Fatal]
